FAERS Safety Report 4760281-1 (Version None)
Quarter: 2005Q3

REPORT INFORMATION
  Report Type: 
  Country: None (occurrence: None)
  Receive Date: 20050902
  Receipt Date: 20050829
  Transmission Date: 20060218
  Serious: Yes (Other)
  Sender: FDA-Public Use
  Company Number: JP-ROCHE-415693

PATIENT
  Age: 65 Year
  Sex: Male

DRUGS (1)
  1. NICARDIPINE HCL [Suspect]
     Indication: HYPERTENSION
     Dosage: REPORTED THERAPY DURATION OF LESS THAN 1 YEAR.
     Route: 041
     Dates: start: 20040415, end: 20040415

REACTIONS (4)
  - BLOOD PRESSURE DECREASED [None]
  - GASTROINTESTINAL NECROSIS [None]
  - INTESTINAL ISCHAEMIA [None]
  - PERITONITIS [None]
